FAERS Safety Report 5040194-0 (Version None)
Quarter: 2006Q2

REPORT INFORMATION
  Report Type: 
  Country: None (occurrence: None)
  Receive Date: 20060630
  Receipt Date: 20060622
  Transmission Date: 20061013
  Serious: Yes (Death, Other)
  Sender: FDA-Public Use
  Company Number: HK-MERCK-0606HKG00002

PATIENT
  Age: 80 Year
  Sex: Male

DRUGS (4)
  1. PRIMAXIN [Suspect]
     Indication: PNEUMONIA
     Route: 065
     Dates: start: 20060101, end: 20060101
  2. AMINOPHYLLINE [Suspect]
     Indication: OBSTRUCTIVE AIRWAYS DISORDER
     Route: 065
     Dates: start: 20060101, end: 20060101
  3. ANTIMICROBIAL (UNSPECIFIED) [Concomitant]
     Route: 065
     Dates: start: 20060101, end: 20060101
  4. [THERAPY UNSPECIFIED] [Concomitant]
     Indication: OBSTRUCTIVE AIRWAYS DISORDER
     Route: 065

REACTIONS (2)
  - CONVULSION [None]
  - DEATH [None]
